FAERS Safety Report 8828588 (Version 2)
Quarter: 2014Q3

REPORT INFORMATION
  Report Type: Report from Study
  Country: US (occurrence: US)
  Receive Date: 20121005
  Receipt Date: 20140821
  Transmission Date: 20150326
  Serious: Yes (Life-Threatening, Hospitalization)
  Sender: FDA-Public Use
  Company Number: US-ROCHE-1136988

PATIENT
  Age: 40 Year
  Sex: Male
  Weight: 66.36 kg

DRUGS (4)
  1. IVIG [Concomitant]
     Active Substance: HUMAN IMMUNOGLOBULIN G
  2. DANAZOL. [Concomitant]
     Active Substance: DANAZOL
  3. RITUXAN [Suspect]
     Active Substance: RITUXIMAB
     Indication: AUTOIMMUNE HAEMOLYTIC ANAEMIA
     Route: 065
     Dates: start: 20070703, end: 20070703
  4. PREDNISONE. [Concomitant]
     Active Substance: PREDNISONE

REACTIONS (9)
  - Respiratory arrest [Unknown]
  - Tachycardia [Unknown]
  - Respiratory distress [Unknown]
  - Dyspnoea [Unknown]
  - Off label use [Unknown]
  - Hyperhidrosis [Unknown]
  - Pulse abnormal [Unknown]
  - Urinary incontinence [Unknown]
  - Faecal incontinence [Unknown]

NARRATIVE: CASE EVENT DATE: 20070703
